FAERS Safety Report 5156418-5 (Version None)
Quarter: 2006Q4

REPORT INFORMATION
  Report Type: 
  Country: None (occurrence: None)
  Receive Date: 20061114
  Receipt Date: 20061108
  Transmission Date: 20070319
  Serious: Yes (Hospitalization)
  Sender: FDA-Public Use
  Company Number: 2006SP005051

PATIENT
  Age: 61 Year
  Sex: Male
  Weight: 86.4 kg

DRUGS (3)
  1. TEMODAR [Suspect]
     Indication: GLIOBLASTOMA MULTIFORME
     Dosage: QD; PO
     Route: 048
     Dates: start: 20061002, end: 20061013
  2. TEMODAR [Suspect]
     Indication: GLIOBLASTOMA MULTIFORME
     Dosage: QD; PO
     Route: 048
     Dates: start: 20061016
  3. RADIATION THERAPY [Concomitant]

REACTIONS (3)
  - ATELECTASIS [None]
  - PNEUMONITIS [None]
  - PULMONARY EMBOLISM [None]
